FAERS Safety Report 18453003 (Version 1)
Quarter: 2020Q4

REPORT INFORMATION
  Report Type: Spontaneous
  Country: US (occurrence: US)
  Receive Date: 20201102
  Receipt Date: 20201102
  Transmission Date: 20210114
  Serious: Yes (Hospitalization, Other)
  Sender: FDA-Public Use
  Company Number: US-009507513-2010USA011882

PATIENT
  Sex: Female

DRUGS (61)
  1. REZULIN [Suspect]
     Active Substance: TROGLITAZONE
     Indication: DIABETES MELLITUS
     Dosage: UNK
     Route: 065
     Dates: start: 19970602, end: 19990204
  2. GLUCOPHAGE [Concomitant]
     Active Substance: METFORMIN HYDROCHLORIDE
     Dosage: UNK
  3. VENTOLINE (ALBUTEROL) [Concomitant]
     Active Substance: ALBUTEROL
     Dosage: UNK
  4. TOBRAMYCIN SULFATE. [Concomitant]
     Active Substance: TOBRAMYCIN SULFATE
     Dosage: UNK
  5. CASTLE^S INTRINSIC FACTOR [Concomitant]
  6. PEPCID [Concomitant]
     Active Substance: FAMOTIDINE
     Dosage: UNK
  7. HYDRALAZINE HYDROCHLORIDE. [Concomitant]
     Active Substance: HYDRALAZINE HYDROCHLORIDE
     Dosage: UNK
  8. PROPULSID [Concomitant]
     Active Substance: CISAPRIDE
     Dosage: UNK
  9. REZULIN [Suspect]
     Active Substance: TROGLITAZONE
     Dosage: UNK
     Route: 048
     Dates: start: 19970401, end: 19970602
  10. NIMBEX [Concomitant]
     Active Substance: CISATRACURIUM BESYLATE
     Dosage: UNK
  11. AMPICILLIN [Concomitant]
     Active Substance: AMPICILLIN
     Dosage: UNK
  12. PHYTONADIONE. [Concomitant]
     Active Substance: PHYTONADIONE
     Dosage: UNK
  13. ANCEF [Concomitant]
     Active Substance: CEFAZOLIN SODIUM
     Dosage: UNK
  14. DEMADEX [Concomitant]
     Active Substance: TORSEMIDE
     Dosage: UNK
  15. NORVASC [Concomitant]
     Active Substance: AMLODIPINE BESYLATE
     Dosage: UNK
  16. PRINIVIL [Suspect]
     Active Substance: LISINOPRIL
     Indication: ILL-DEFINED DISORDER
     Dosage: UNK
     Route: 065
     Dates: start: 19990810, end: 19990920
  17. REGLAN [Suspect]
     Active Substance: METOCLOPRAMIDE HYDROCHLORIDE
     Indication: ILL-DEFINED DISORDER
     Dosage: UNK
     Route: 065
     Dates: start: 19990211, end: 19990213
  18. PIPERACILLIN SODIUM [Concomitant]
     Active Substance: PIPERACILLIN SODIUM
     Dosage: UNK
  19. NICARDIPINE HYDROCHLORIDE. [Concomitant]
     Active Substance: NICARDIPINE HYDROCHLORIDE
     Dosage: UNK
  20. REGLAN [Concomitant]
     Active Substance: METOCLOPRAMIDE HYDROCHLORIDE
     Dosage: UNK
  21. FOLIC ACID. [Concomitant]
     Active Substance: FOLIC ACID
     Dosage: UNK
  22. ATROVENT [Concomitant]
     Active Substance: IPRATROPIUM BROMIDE
     Dosage: UNK
  23. MOTRIN [Concomitant]
     Active Substance: IBUPROFEN
     Dosage: UNK
  24. TRIAMTERENE. [Concomitant]
     Active Substance: TRIAMTERENE
     Dosage: UNK
  25. ISOPHANE INSULIN [Concomitant]
     Active Substance: INSULIN NOS
     Dosage: UNK
  26. DECADRON [Concomitant]
     Active Substance: DEXAMETHASONE
     Dosage: UNK
  27. PHOSPHO-SODA [Concomitant]
     Active Substance: SODIUM PHOSPHATE, DIBASIC\SODIUM PHOSPHATE, MONOBASIC
     Dosage: UNK
  28. CLONIDINE. [Concomitant]
     Active Substance: CLONIDINE
     Dosage: UNK
  29. FERROUS SULFATE. [Concomitant]
     Active Substance: FERROUS SULFATE
     Dosage: UNK
  30. COLACE [Concomitant]
     Active Substance: DOCUSATE SODIUM
     Dosage: UNK
  31. DULCOLAX NOS [Concomitant]
     Active Substance: BISACODYL OR DOCUSATE SODIUM
     Dosage: UNK
  32. MAGNESIUM GLUCONATE [Concomitant]
     Active Substance: MAGNESIUM GLUCONATE
     Dosage: UNK
  33. TRENTAL [Concomitant]
     Active Substance: PENTOXIFYLLINE
     Dosage: UNK
  34. MAGNESIUM SULFATE. [Concomitant]
     Active Substance: MAGNESIUM SULFATE
     Dosage: UNK
  35. TYLENOL [Concomitant]
     Active Substance: ACETAMINOPHEN
     Dosage: UNK
  36. ASCORBIC ACID. [Concomitant]
     Active Substance: ASCORBIC ACID
     Dosage: UNK
  37. RITALIN [Concomitant]
     Active Substance: METHYLPHENIDATE HYDROCHLORIDE
     Dosage: UNK
  38. DOCUSATE SODIUM. [Concomitant]
     Active Substance: DOCUSATE SODIUM
     Dosage: UNK
  39. VERAPAMIL [Concomitant]
     Active Substance: VERAPAMIL HYDROCHLORIDE
     Dosage: UNK
  40. DIPRIVAN [Concomitant]
     Active Substance: PROPOFOL
     Dosage: UNK
  41. PROZAC [Concomitant]
     Active Substance: FLUOXETINE HYDROCHLORIDE
     Dosage: UNK
  42. VASOTEC [Concomitant]
     Active Substance: ENALAPRIL MALEATE
     Dosage: UNK
  43. CYANOCOBALAMIN. [Concomitant]
     Active Substance: CYANOCOBALAMIN
     Dosage: UNK
  44. POTASSIUM CHLORIDE. [Concomitant]
     Active Substance: POTASSIUM CHLORIDE
     Dosage: UNK
  45. MORPHINE [Concomitant]
     Active Substance: MORPHINE
     Dosage: UNK
  46. LASIX [Concomitant]
     Active Substance: FUROSEMIDE
     Dosage: UNK
  47. CLONIDINE HYDROCHLORIDE. [Concomitant]
     Active Substance: CLONIDINE HYDROCHLORIDE
  48. FOSPHENYTOIN SODIUM. [Concomitant]
     Active Substance: FOSPHENYTOIN SODIUM
     Dosage: UNK
  49. ERYTHROMYCIN ETHYLSUCCINATE. [Suspect]
     Active Substance: ERYTHROMYCIN ETHYLSUCCINATE
     Indication: ILL-DEFINED DISORDER
     Dosage: UNK
     Route: 065
     Dates: start: 19990212, end: 19990213
  50. AMBISOME [Suspect]
     Active Substance: AMPHOTERICIN B
     Indication: PRODUCT USED FOR UNKNOWN INDICATION
     Dosage: UNK
     Route: 042
     Dates: end: 19990327
  51. SODIUM PHOSPHATE, DIBASIC [Concomitant]
     Active Substance: SODIUM PHOSPHATE, DIBASIC
     Dosage: UNK
  52. VERSED [Concomitant]
     Active Substance: MIDAZOLAM HYDROCHLORIDE
     Dosage: UNK
  53. HEPARIN SODIUM. [Concomitant]
     Active Substance: HEPARIN SODIUM
     Dosage: UNK
  54. VERAPAMIL HYDROCHLORIDE. [Concomitant]
     Active Substance: VERAPAMIL HYDROCHLORIDE
     Dosage: UNK
  55. ATIVAN [Concomitant]
     Active Substance: LORAZEPAM
     Dosage: UNK
  56. ZANTAC [Concomitant]
     Active Substance: RANITIDINE HYDROCHLORIDE
  57. LIDOCAINE. [Concomitant]
     Active Substance: LIDOCAINE
     Dosage: UNK
  58. NIPRIDE [Concomitant]
     Active Substance: SODIUM NITROPRUSSIDE
     Dosage: UNK
  59. UNASYN (SULTAMICILLIN TOSYLATE) [Concomitant]
     Active Substance: SULTAMICILLIN TOSYLATE
     Dosage: UNK
  60. FERROUS FUMARATE [Concomitant]
     Active Substance: FERROUS FUMARATE
     Dosage: UNK
  61. UROKINASE [Concomitant]
     Active Substance: UROKINASE
     Dosage: UNK

REACTIONS (77)
  - Systemic candida [Recovered/Resolved]
  - Back pain [Recovered/Resolved]
  - Dyspnoea [Recovered/Resolved]
  - Ascites [Recovered/Resolved]
  - Dyspnoea [Recovered/Resolved]
  - Ileus [Recovered/Resolved]
  - Dyslipidaemia [Unknown]
  - Cough [Unknown]
  - Proctalgia [Recovered/Resolved]
  - Chest pain [Recovered/Resolved]
  - Cardiac failure congestive [Unknown]
  - Haematochezia [Unknown]
  - Hydrocephalus [Recovered/Resolved]
  - Renal tubular necrosis [Recovered/Resolved]
  - Ketonuria [Recovered/Resolved]
  - Anxiety [Recovered/Resolved]
  - Diabetic retinopathy [Unknown]
  - Blood potassium increased [Recovered/Resolved]
  - Diabetic retinopathy [Unknown]
  - Respiratory distress [Recovered/Resolved]
  - Bradyarrhythmia [Recovered/Resolved]
  - Diarrhoea [Recovered/Resolved]
  - Systemic candida [Recovered/Resolved]
  - Constipation [Unknown]
  - Chronic obstructive pulmonary disease [Unknown]
  - Respiratory disorder [Recovered/Resolved]
  - Confusional state [Recovered/Resolved]
  - Ventricular extrasystoles [Recovered/Resolved]
  - Retinopathy hypertensive [Unknown]
  - Oedema [Recovered/Resolved]
  - Cellulitis [Recovered/Resolved]
  - Blood magnesium decreased [Recovered/Resolved]
  - Liver injury [Unknown]
  - Liddle^s syndrome [Unknown]
  - Hypokalaemia [Recovered/Resolved]
  - Lung infiltration [Recovered/Resolved]
  - Hyperplasia adrenal [Unknown]
  - Skin disorder [Unknown]
  - Atelectasis [Recovered/Resolved]
  - Headache [Recovered/Resolved]
  - Cardiomegaly [Unknown]
  - Acute respiratory distress syndrome [Unknown]
  - Eye haemorrhage [Unknown]
  - Decreased appetite [Recovered/Resolved]
  - Diabetes mellitus inadequate control [Unknown]
  - Hypothermia [Recovered/Resolved]
  - Enteritis [Recovered/Resolved]
  - Rales [Recovered/Resolved]
  - Bacteraemia [Recovered/Resolved]
  - Agitation [Recovered/Resolved]
  - Encephalopathy [Unknown]
  - Asthenia [Unknown]
  - Rhonchi [Recovered/Resolved]
  - Sepsis [Recovered/Resolved]
  - Decreased appetite [Recovered/Resolved]
  - Proteinuria [Unknown]
  - Depression [Recovered/Resolved]
  - Iron deficiency anaemia [Unknown]
  - Generalised oedema [Recovered/Resolved]
  - Sleep apnoea syndrome [Unknown]
  - Abdominal distension [Recovered/Resolved]
  - Abdominal discomfort [Unknown]
  - Dizziness [Recovered/Resolved]
  - Cerebrovascular disorder [Recovered/Resolved]
  - Pneumonia [Recovered/Resolved]
  - Renal tubular necrosis [Recovered/Resolved]
  - Asthenia [Unknown]
  - Haematuria [Recovered/Resolved]
  - Cerebrovascular disorder [Unknown]
  - Nausea [Unknown]
  - Pulmonary oedema [Recovered/Resolved]
  - Pleural effusion [Recovered/Resolved]
  - Back pain [Recovered/Resolved]
  - Osteoarthritis [Unknown]
  - Phlebolith [Unknown]
  - Ventricular extrasystoles [Recovered/Resolved]
  - Application site reaction [Recovered/Resolved]

NARRATIVE: CASE EVENT DATE: 19980321
